FAERS Safety Report 5069532-X (Version None)
Quarter: 2006Q3

REPORT INFORMATION
  Report Type: 
  Country: None (occurrence: None)
  Receive Date: 20060803
  Receipt Date: 20060724
  Transmission Date: 20061208
  Serious: Yes (Hospitalization)
  Sender: FDA-Public Use
  Company Number: PHEH2006US09799

PATIENT
  Age: 67 Year
  Sex: Male

DRUGS (2)
  1. DESFERAL [Suspect]
     Indication: BLOOD IRON INCREASED
     Dosage: UNK, UNK
  2. SYNTHROID [Concomitant]

REACTIONS (9)
  - ASTHENIA [None]
  - CHILLS [None]
  - COUGH [None]
  - DEHYDRATION [None]
  - DYSPNOEA [None]
  - PLEURITIC PAIN [None]
  - PNEUMONIA [None]
  - PYREXIA [None]
  - RENAL FAILURE [None]
